FAERS Safety Report 8781019 (Version 1)
Quarter: 2012Q4

REPORT INFORMATION
  Report Type: 
  Country: DE (occurrence: US)
  Receive Date: 20120913
  Receipt Date: 20120913
  Transmission Date: 20130627
  Serious: Yes (Other)
  Sender: FDA-Public Use
  Company Number: DE-RANBAXY-2012US-59765

PATIENT
  Sex: Female

DRUGS (7)
  1. CEFPODOXIME PROXETIL [Suspect]
     Indication: URINARY TRACT INFECTION
     Dosage: 200 mg, bid
     Route: 065
     Dates: start: 20120820, end: 20120823
  2. GABAPENTIN [Suspect]
     Indication: NEUROPATHY PERIPHERAL
     Dosage: 300 mg, qd(at bed time)
     Route: 065
  3. ATENOLOL [Suspect]
     Indication: HYPERTENSION
     Dosage: 25 mg
     Route: 065
  4. SIMVASTATIN [Suspect]
     Indication: HYPERLIPIDAEMIA
     Dosage: 40 mg, qd(at bed time)
     Route: 065
  5. HEPARIN [Suspect]
     Indication: THROMBOSIS PROPHYLAXIS
     Dosage: 5000 IU ,tid
     Route: 058
  6. PAXIL [Suspect]
     Indication: ANXIETY
     Dosage: 30 mg
     Route: 065
  7. PROTONIX [Suspect]
     Indication: GASTROOESOPHAGEAL REFLUX DISEASE
     Dosage: 20 mg
     Route: 048

REACTIONS (2)
  - Blood disorder [Unknown]
  - Agranulocytosis [Unknown]
